FAERS Safety Report 11962478 (Version 3)
Quarter: 2016Q1

REPORT INFORMATION
  Report Type: Spontaneous
  Country: US (occurrence: US)
  Receive Date: 20160126
  Receipt Date: 20160225
  Transmission Date: 20160526
  Serious: Yes (Other)
  Sender: FDA-Public Use
  Company Number: US-PROCTER_AND_GAMBLE-GS16003115

PATIENT
  Sex: Female

DRUGS (3)
  1. CREST PRO-HEALTH FOR LIFE (STANNOUS FLUORIDE) [Suspect]
     Active Substance: STANNOUS FLUORIDE
     Dosage: NONE
     Route: 047
     Dates: start: 20151130, end: 20151130
  2. CREST PRO-HEALTH SENSITIVE SHIELD SMOOTH MINT [Suspect]
     Active Substance: STANNOUS FLUORIDE
     Dosage: N/A
     Route: 047
     Dates: start: 20151129, end: 20151129
  3. CREST PRO-HEALTH SENSITIVE SHIELD SMOOTH MINT [Suspect]
     Active Substance: STANNOUS FLUORIDE
     Dosage: N/A
     Route: 047
     Dates: start: 201512, end: 201512

REACTIONS (13)
  - Eye irritation [Unknown]
  - Exposure via direct contact [Unknown]
  - Eye injury [Not Recovered/Not Resolved]
  - Blindness [Not Recovered/Not Resolved]
  - Corneal scar [Not Recovered/Not Resolved]
  - Eye inflammation [Not Recovered/Not Resolved]
  - Injury corneal [Recovered/Resolved]
  - Visual acuity reduced [Not Recovered/Not Resolved]
  - Corneal infection [Not Recovered/Not Resolved]
  - Eye pain [Not Recovered/Not Resolved]
  - Ocular hyperaemia [Unknown]
  - Accidental exposure to product [Unknown]
  - Expired product administered [Unknown]

NARRATIVE: CASE EVENT DATE: 20151129
